FAERS Safety Report 20062469 (Version 2)
Quarter: 2022Q4

REPORT INFORMATION
  Report Type: Report from Study
  Country: EG (occurrence: EG)
  Receive Date: 20211112
  Receipt Date: 20221230
  Transmission Date: 20230113
  Serious: Yes (Death, Hospitalization)
  Sender: FDA-Public Use
  Company Number: EG-NOVARTISPH-NVSC2021EG255304

PATIENT
  Sex: Female

DRUGS (1)
  1. PIQRAY [Suspect]
     Active Substance: ALPELISIB
     Indication: Product used for unknown indication
     Dosage: UNK (150+150 MG)
     Route: 048
     Dates: start: 20210621

REACTIONS (4)
  - Death [Fatal]
  - Syncope [Unknown]
  - Mobility decreased [Unknown]
  - Dyspnoea [Unknown]
